FAERS Safety Report 9875365 (Version 1)
Quarter: 2014Q1

REPORT INFORMATION
  Report Type: Spontaneous
  Country: US (occurrence: None)
  Receive Date: 20140204
  Receipt Date: 20140204
  Transmission Date: 20141002
  Serious: Yes (Death)
  Sender: FDA-Public Use
  Company Number: IMP_06976_2014

PATIENT
  Age: 44 Year
  Sex: Male

DRUGS (6)
  1. GEMFIBROZIL [Suspect]
     Dosage: DF
  2. AMLODIPINE [Suspect]
     Dosage: DF
  3. ATENOLOL [Suspect]
     Dosage: DF
  4. INSULIN [Suspect]
  5. SODIUM SALICYLATE [Suspect]
     Dosage: DF
  6. PRAVASTATIN [Suspect]
     Dosage: DF

REACTIONS (2)
  - Poisoning [None]
  - Completed suicide [None]
